FAERS Safety Report 7476027-2 (Version None)
Quarter: 2011Q2

REPORT INFORMATION
  Report Type: 
  Country: None (occurrence: None)
  Receive Date: 20110505
  Receipt Date: 20110429
  Transmission Date: 20111010
  Serious: Yes (Death, Hospitalization)
  Sender: FDA-Public Use
  Company Number: 2011AC000001

PATIENT
  Age: 54 Year
  Sex: Female
  Weight: 64.6376 kg

DRUGS (2)
  1. DIGOXIN [Suspect]
     Dosage: PO
     Route: 048
     Dates: start: 20060301, end: 20080101
  2. DIGOXIN [Suspect]
     Dosage: PO
     Route: 048
     Dates: start: 20071120, end: 20080101

REACTIONS (7)
  - EMOTIONAL DISTRESS [None]
  - ECONOMIC PROBLEM [None]
  - TOXICITY TO VARIOUS AGENTS [None]
  - RENAL FAILURE [None]
  - PAIN [None]
  - ACUTE RESPIRATORY FAILURE [None]
  - ANXIETY [None]
